FAERS Safety Report 5144867-0 (Version None)
Quarter: 2006Q4

REPORT INFORMATION
  Report Type: 
  Country: None (occurrence: None)
  Receive Date: 20061107
  Receipt Date: 20060302
  Transmission Date: 20070319
  Serious: Yes (Hospitalization)
  Sender: FDA-Public Use
  Company Number: US-ELI_LILLY_AND_COMPANY-US200603004105

PATIENT
  Age: 58 Year
  Sex: Male
  Weight: 119.27 kg

DRUGS (6)
  1. SYMBYAX [Suspect]
     Route: 048
     Dates: start: 20010501, end: 20040501
  2. BUPROPION HCL [Concomitant]
     Route: 048
     Dates: start: 19981201
  3. ZYPREXA [Suspect]
     Indication: DEPRESSION
     Dosage: 2.5 MG, UNK
     Route: 048
     Dates: start: 20010517, end: 20040513
  4. ZYPREXA [Suspect]
     Dosage: 5 MG, UNK
     Route: 048
     Dates: start: 20010517, end: 20040513
  5. ZYPREXA [Suspect]
     Dosage: 7.5 MG, UNK
     Route: 048
     Dates: start: 20010517, end: 20040513
  6. ZYPREXA [Suspect]
     Dosage: 10 MG, UNK
     Route: 048
     Dates: start: 20010517, end: 20040513

REACTIONS (2)
  - DIABETES MELLITUS [None]
  - STENT PLACEMENT [None]
